FAERS Safety Report 22351434 (Version 3)
Quarter: 2023Q2

REPORT INFORMATION
  Report Type: Spontaneous
  Country: GR (occurrence: GR)
  Receive Date: 20230522
  Receipt Date: 20230626
  Transmission Date: 20230722
  Serious: Yes (Hospitalization, Other)
  Sender: FDA-Public Use
  Company Number: GR-JNJFOC-20230543466

PATIENT
  Age: 42 Year
  Sex: Male

DRUGS (8)
  1. STELARA [Suspect]
     Active Substance: USTEKINUMAB
     Indication: Crohn^s disease
     Dosage: 390 MILLIGRAM, INITIAL DOSE
     Route: 042
     Dates: start: 201801
  2. STELARA [Suspect]
     Active Substance: USTEKINUMAB
     Dosage: 90 MILLIGRAM, EVERY 8 WEEKS
     Route: 058
     Dates: start: 2018
  3. ADALIMUMAB [Suspect]
     Active Substance: ADALIMUMAB
     Indication: Crohn^s disease
     Dosage: DURATION OF DRUG ADMINISTRATION 2 YEARS
     Route: 065
  4. ADALIMUMAB [Suspect]
     Active Substance: ADALIMUMAB
     Dosage: UNK
     Route: 065
  5. ADALIMUMAB [Suspect]
     Active Substance: ADALIMUMAB
     Dosage: 40 MILLIGRAM, BIWEEKLY (EVERY OTHER WEEK FOR TWO YEARS)
     Route: 065
  6. AZATHIOPRINE [Suspect]
     Active Substance: AZATHIOPRINE
     Indication: Crohn^s disease
     Dosage: A DURATION OF DRUG ADMINISTRATION 4 YEARS
     Route: 065
  7. INFLIXIMAB [Suspect]
     Active Substance: INFLIXIMAB
     Indication: Crohn^s disease
     Route: 050
  8. AZATHIOPRINE [Concomitant]
     Active Substance: AZATHIOPRINE
     Indication: Crohn^s disease
     Dosage: 100 MILLIGRAM, QD
     Route: 065

REACTIONS (7)
  - Acute kidney injury [Recovered/Resolved]
  - Acute respiratory failure [Recovered/Resolved]
  - Metastatic malignant melanoma [Recovering/Resolving]
  - Intentional product misuse [Unknown]
  - Polyneuropathy [Unknown]
  - Treatment noncompliance [Unknown]
  - Malignant melanoma [Recovered/Resolved]

NARRATIVE: CASE EVENT DATE: 20210101
